FAERS Safety Report 8081194-6 (Version None)
Quarter: 2012Q1

REPORT INFORMATION
  Report Type: 
  Country: None (occurrence: None)
  Receive Date: 20120130
  Receipt Date: 20120123
  Transmission Date: 20120608
  Serious: Yes (Life-Threatening, Hospitalization, Other)
  Sender: FDA-Public Use
  Company Number: DE-VIIV HEALTHCARE LIMITED-D0073512A

PATIENT
  Age: 44 Year
  Sex: Female
  Weight: 63 kg

DRUGS (10)
  1. COTRIM DS [Suspect]
     Dosage: 480MG SINGLE DOSE
     Route: 048
     Dates: start: 20110413, end: 20110819
  2. FLUCONAZOLE [Concomitant]
     Route: 048
     Dates: start: 20110401, end: 20110801
  3. RAMIPRIL [Concomitant]
     Dosage: 5MG TWICE PER DAY
     Route: 048
     Dates: start: 20100401, end: 20110824
  4. REYATAZ [Suspect]
     Indication: HIV INFECTION
     Dosage: 300MG PER DAY
     Route: 048
     Dates: start: 20110420, end: 20110819
  5. CITALOPRAM [Concomitant]
     Dosage: 20MG PER DAY
     Route: 048
     Dates: start: 20100801, end: 20110819
  6. ABACAVIR SULFATE [Suspect]
     Indication: HIV INFECTION
     Dosage: 1UNIT PER DAY
     Route: 048
     Dates: start: 20110729, end: 20110819
  7. ADALAT [Concomitant]
     Indication: RAYNAUD'S PHENOMENON
     Dosage: 10MG TWICE PER DAY
     Route: 048
     Dates: start: 20110728, end: 20110820
  8. NORVIR [Concomitant]
     Indication: HIV INFECTION
     Dosage: 100MG PER DAY
     Route: 048
     Dates: start: 20110420
  9. TRUVADA [Concomitant]
     Route: 048
     Dates: start: 20110420, end: 20110728
  10. BISOPROLOL FUMARATE AND HYDROCHLOROTHIAZIDE [Concomitant]
     Dosage: 2.5MG TWICE PER DAY
     Route: 048
     Dates: start: 20100401, end: 20110819

REACTIONS (5)
  - RENAL FAILURE ACUTE [None]
  - TUBULOINTERSTITIAL NEPHRITIS [None]
  - BLOOD CREATININE INCREASED [None]
  - AZOTAEMIA [None]
  - ANURIA [None]
